FAERS Safety Report 6671688-X (Version None)
Quarter: 2010Q2

REPORT INFORMATION
  Report Type: 
  Country: None (occurrence: None)
  Receive Date: 20100406
  Receipt Date: 20100406
  Transmission Date: 20101027
  Serious: Yes (Other)
  Sender: FDA-Public Use
  Company Number: None

PATIENT
  Age: 7 Year
  Sex: Male
  Weight: 13.1543 kg

DRUGS (1)
  1. GUANFACINE [Suspect]
     Indication: ANXIETY
     Dosage: 1MG DAILY PO
     Route: 048
     Dates: start: 20090820, end: 20090901

REACTIONS (4)
  - FOOD ALLERGY [None]
  - PSYCHOMOTOR HYPERACTIVITY [None]
  - SINUS CONGESTION [None]
  - THYROID DISORDER [None]
